FAERS Safety Report 5706647-4 (Version None)
Quarter: 2008Q2

REPORT INFORMATION
  Report Type: 
  Country: None (occurrence: None)
  Receive Date: 20080416
  Receipt Date: 20080404
  Transmission Date: 20081010
  Serious: Yes (Hospitalization)
  Sender: FDA-Public Use
  Company Number: FR-SOLVAY-00308000821

PATIENT
  Age: 25 Year
  Sex: Male

DRUGS (5)
  1. FK506 [Concomitant]
     Indication: DRUG USE FOR UNKNOWN INDICATION
     Dosage: DAILY DOSE:  UNKNOWN
     Route: 048
     Dates: start: 19950101
  2. CREON [Suspect]
     Indication: DRUG USE FOR UNKNOWN INDICATION
     Dosage: DAILY DOSE: 8 CAPSULES
     Route: 048
     Dates: start: 19840101
  3. CREON [Suspect]
     Dosage: DAILY DOSE: 4 CAPSULES
     Route: 048
  4. TOCO 500 [Concomitant]
     Indication: DRUG USE FOR UNKNOWN INDICATION
     Dosage: DAILY DOSE:  UNKNOWN
     Route: 048
  5. PROTOVIT [Concomitant]
     Indication: DRUG USE FOR UNKNOWN INDICATION
     Dosage: DAILY DOSE:  UNKNOWN
     Route: 048

REACTIONS (2)
  - GASTROINTESTINAL DISORDER [None]
  - INTESTINAL MUCOSAL HYPERTROPHY [None]
